FAERS Safety Report 9602176 (Version 1)
Quarter: 2013Q4

REPORT INFORMATION
  Report Type: Spontaneous
  Country: BB (occurrence: None)
  Receive Date: 20131003
  Receipt Date: 20131003
  Transmission Date: 20140711
  Serious: No
  Sender: FDA-Public Use
  Company Number: CO-OR-UK-2013-097

PATIENT
  Sex: 0

DRUGS (3)
  1. PREDNISOLONE [Suspect]
     Indication: RENAL TRANSPLANT
  2. TACROLIMUS [Suspect]
     Indication: RENAL TRANSPLANT
  3. MYCOPHENOLATE MOFETIL [Suspect]
     Indication: RENAL TRANSPLANT

REACTIONS (1)
  - Kidney transplant rejection [None]
